FAERS Safety Report 5187485-0 (Version None)
Quarter: 2006Q4

REPORT INFORMATION
  Report Type: 
  Country: None (occurrence: None)
  Receive Date: 20061220
  Receipt Date: 20060410
  Transmission Date: 20070319
  Serious: No
  Sender: FDA-Public Use
  Company Number: US-AMGEN-US175726

PATIENT
  Sex: Male

DRUGS (3)
  1. ENBREL [Suspect]
     Indication: PSORIATIC ARTHROPATHY
     Dates: start: 20050101
  2. VITAMINS [Concomitant]
     Route: 065
  3. FISH OIL [Concomitant]
     Route: 065

REACTIONS (2)
  - PRURITUS [None]
  - RASH MACULAR [None]
